FAERS Safety Report 10432307 (Version 1)
Quarter: 2014Q3

REPORT INFORMATION
  Report Type: Spontaneous
  Country: US (occurrence: None)
  Receive Date: 20140904
  Receipt Date: 20140904
  Transmission Date: 20150326
  Serious: No
  Sender: FDA-Public Use
  Company Number: None

PATIENT
  Age: 18 Year
  Sex: Female
  Weight: 65.77 kg

DRUGS (1)
  1. TRINESSA [Suspect]
     Active Substance: ETHINYL ESTRADIOL\NORGESTIMATE
     Indication: CONTRACEPTION
     Dosage: 1 PILL, ONCE DAILY, TAKEN BY MOUTH
     Route: 048
     Dates: start: 20140818, end: 20140831

REACTIONS (5)
  - Peripheral swelling [None]
  - Swelling [None]
  - Rash [None]
  - Joint swelling [None]
  - Abasia [None]

NARRATIVE: CASE EVENT DATE: 20140830
